FAERS Safety Report 24436840 (Version 1)
Quarter: 2024Q4

REPORT INFORMATION
  Report Type: Spontaneous
  Country: CA (occurrence: CA)
  Receive Date: 20241015
  Receipt Date: 20241015
  Transmission Date: 20250114
  Serious: Yes (Other)
  Sender: ROCHE
  Company Number: CA-ROCHE-10000105403

PATIENT
  Age: 73 Year
  Sex: Male

DRUGS (3)
  1. RITUXIMAB [Suspect]
     Active Substance: RITUXIMAB
     Indication: Acquired epidermolysis bullosa
     Route: 042
  2. ACETAMINOPHEN [Concomitant]
     Active Substance: ACETAMINOPHEN
     Indication: Product used for unknown indication
     Route: 048
  3. DIPHENHYDRAMINE [Concomitant]
     Active Substance: DIPHENHYDRAMINE
     Indication: Product used for unknown indication
     Route: 048

REACTIONS (7)
  - Acquired epidermolysis bullosa [Unknown]
  - Condition aggravated [Unknown]
  - Drug ineffective [Unknown]
  - Fatigue [Unknown]
  - Malaise [Unknown]
  - Off label use [Unknown]
  - Somnolence [Unknown]
